FAERS Safety Report 9718218 (Version 1)
Quarter: 2013Q4

REPORT INFORMATION
  Report Type: Spontaneous
  Country: JP (occurrence: JP)
  Receive Date: 20131127
  Receipt Date: 20131127
  Transmission Date: 20140711
  Serious: Yes (Hospitalization, Other)
  Sender: FDA-Public Use
  Company Number: JP-WATSON-2013-21169

PATIENT
  Age: 30 Year
  Sex: Male

DRUGS (13)
  1. WARFARIN (UNKNOWN) [Suspect]
     Indication: CONGESTIVE CARDIOMYOPATHY
     Dosage: 4 MG, DAILY
     Route: 065
  2. SODIUM VALPROATE (UNKNOWN) [Interacting]
     Indication: ASPERGER^S DISORDER
     Dosage: 800 MG, DAILY
     Route: 065
  3. ALLOPURINOL (UNKNOWN) [Interacting]
     Indication: HYPERURICAEMIA
     Dosage: 900 MG, DAILY
     Route: 065
  4. LEVOFLOXACIN (UNKNOWN) [Interacting]
     Indication: URINARY TRACT INFECTION
     Dosage: 900 MG, DAILY
     Route: 065
  5. ASPIRIN [Concomitant]
     Indication: CONGESTIVE CARDIOMYOPATHY
     Dosage: 100 MG, DAILY
     Route: 065
  6. DIGOXIN [Concomitant]
     Indication: CONGESTIVE CARDIOMYOPATHY
     Dosage: 0.25 MG, DAILY
     Route: 065
  7. PIMOBENDAN [Concomitant]
     Indication: CONGESTIVE CARDIOMYOPATHY
     Dosage: 20 MG, DAILY
     Route: 065
  8. ATENOLOL [Concomitant]
     Indication: CONGESTIVE CARDIOMYOPATHY
     Dosage: 50 MG, DAILY
     Route: 065
  9. GLIMEPIRIDE [Concomitant]
     Indication: DIABETES MELLITUS
     Dosage: 4 MG, DAILY
     Route: 065
  10. VOGLIBOSE [Concomitant]
     Indication: DIABETES MELLITUS
     Dosage: 2.7 MG, DAILY
     Route: 065
  11. MILNACIPRAN HYDROCHLORIDE [Concomitant]
     Indication: ASPERGER^S DISORDER
     Dosage: 25 MG, DAILY
     Route: 065
  12. FLUVOXAMINE MALEATE [Concomitant]
     Indication: ASPERGER^S DISORDER
     Dosage: 200 MG, DAILY
     Route: 065
  13. RISPERIDONE [Concomitant]
     Indication: ASPERGER^S DISORDER
     Dosage: 2 MG, DAILY
     Route: 065

REACTIONS (7)
  - Hypovolaemic shock [Unknown]
  - Coagulopathy [Recovered/Resolved]
  - Epistaxis [Unknown]
  - Haematuria [Unknown]
  - Haematoma [Unknown]
  - Renal failure acute [Recovered/Resolved]
  - Drug interaction [Unknown]
